FAERS Safety Report 23036728 (Version 1)
Quarter: 2023Q4

REPORT INFORMATION
  Report Type: Spontaneous
  Country: US (occurrence: US)
  Receive Date: 20231006
  Receipt Date: 20231006
  Transmission Date: 20240110
  Serious: Yes (Hospitalization)
  Sender: FDA-Public Use
  Company Number: US-BEIGENE-BGN-2023-011046

PATIENT

DRUGS (3)
  1. BRUKINSA [Suspect]
     Active Substance: ZANUBRUTINIB
     Indication: Chronic lymphocytic leukaemia
     Dosage: 160 MILLIGRAM, Q12H
     Route: 048
     Dates: start: 20230705, end: 20230809
  2. BRUKINSA [Suspect]
     Active Substance: ZANUBRUTINIB
     Dosage: 2 CAPSULES MORNING, 1 CAPSULE EVENING
     Route: 048
     Dates: start: 20230809, end: 20230926
  3. ELIQUIS [Concomitant]
     Active Substance: APIXABAN
     Dosage: 5 MILLIGRAM, Q12H
     Route: 048
     Dates: end: 20230926

REACTIONS (4)
  - Subdural haemorrhage [Not Recovered/Not Resolved]
  - Fall [Unknown]
  - Rash [Not Recovered/Not Resolved]
  - Contusion [Not Recovered/Not Resolved]
